FAERS Safety Report 8520823 (Version 5)
Quarter: 2012Q4

REPORT INFORMATION
  Report Type: 
  Country: US (occurrence: US)
  Receive Date: 20120419
  Receipt Date: 20121017
  Transmission Date: 20130627
  Serious: No
  Sender: FDA-Public Use
  Company Number: US-ASTRAZENECA-2011SE41511

PATIENT
  Age: 52 Year
  Sex: Female

DRUGS (38)
  1. NEXIUM [Suspect]
     Indication: GASTROOESOPHAGEAL REFLUX DISEASE
     Dosage: TWO TIMES DAILY
     Route: 048
     Dates: start: 2001, end: 2003
  2. NEXIUM [Suspect]
     Indication: GASTROOESOPHAGEAL REFLUX DISEASE
     Route: 048
     Dates: start: 2003
  3. NEXIUM [Suspect]
     Indication: GASTROOESOPHAGEAL REFLUX DISEASE
     Route: 048
     Dates: start: 20070305
  4. NEXIUM [Suspect]
     Indication: GASTROOESOPHAGEAL REFLUX DISEASE
     Dosage: DAILY
     Route: 048
     Dates: start: 20081230
  5. NEXIUM [Suspect]
     Indication: GASTROOESOPHAGEAL REFLUX DISEASE
     Dosage: QD
     Route: 048
     Dates: start: 20090306
  6. PREVACID [Concomitant]
     Indication: GASTROOESOPHAGEAL REFLUX DISEASE
     Dates: start: 2001, end: 2003
  7. PROTONIX [Concomitant]
     Indication: GASTROOESOPHAGEAL REFLUX DISEASE
     Dates: start: 2001, end: 2003
  8. TAGAMET [Concomitant]
  9. ZANTAC [Concomitant]
  10. TUMS [Concomitant]
     Indication: OSTEOPENIA
  11. ROLAIDS [Concomitant]
  12. VITAMIN D [Concomitant]
     Indication: OSTEOPENIA
  13. EFAVIRENZ [Concomitant]
  14. EMTRICITABIN [Concomitant]
  15. TENOFOV [Concomitant]
  16. BYPROPION SR [Concomitant]
  17. CLONAZEPAM [Concomitant]
  18. ACETAMINOPHEN [Concomitant]
     Dosage: 7.5/325 MG EVERY 8 HOURS AS NEEDED
  19. TRUVADA [Concomitant]
  20. TRUVADA [Concomitant]
     Dosage: DAILY
     Dates: start: 20081230
  21. ZOLOFT [Concomitant]
     Indication: POST-TRAUMATIC STRESS DISORDER
  22. ZOLOFT [Concomitant]
     Indication: BIPOLAR DISORDER
  23. ZOLOFT [Concomitant]
     Indication: DEPRESSION
  24. SEROQUEL [Concomitant]
     Indication: POST-TRAUMATIC STRESS DISORDER
  25. SEROQUEL [Concomitant]
     Indication: DEPRESSION
  26. SEROQUEL [Concomitant]
     Indication: BIPOLAR DISORDER
  27. SEROQUEL [Concomitant]
     Indication: POST-TRAUMATIC STRESS DISORDER
     Dosage: DAILY
     Dates: start: 20081230
  28. SEROQUEL [Concomitant]
     Indication: DEPRESSION
     Dosage: DAILY
     Dates: start: 20081230
  29. SEROQUEL [Concomitant]
     Indication: BIPOLAR DISORDER
     Dosage: DAILY
     Dates: start: 20081230
  30. ZYRTEC [Concomitant]
     Dates: start: 20070620
  31. CHANTIX [Concomitant]
     Dates: start: 20070620
  32. CHANTIX [Concomitant]
     Dates: start: 20081230
  33. HYDROCODONE APAP [Concomitant]
     Dosage: 5-325
     Dates: start: 20090406
  34. ALLEGRA D [Concomitant]
     Dosage: DAILY
     Dates: start: 20081230
  35. ALLEGRA D [Concomitant]
     Dosage: QD
     Dates: start: 20090306
  36. NORVIR [Concomitant]
     Dosage: QD
     Dates: start: 20090306
  37. KALETRA [Concomitant]
     Dosage: DAILY
     Dates: start: 20081230
  38. INVIRASE [Concomitant]
     Dosage: FOUR TIMES DAILY
     Dates: start: 20081230

REACTIONS (8)
  - Wrist fracture [Unknown]
  - Osteoporosis [Unknown]
  - Fracture [Unknown]
  - Ankle fracture [Unknown]
  - Osteopenia [Unknown]
  - Emotional distress [Unknown]
  - Bipolar disorder [Unknown]
  - Ulna fracture [Unknown]
